FAERS Safety Report 15978568 (Version 6)
Quarter: 2021Q3

REPORT INFORMATION
  Report Type: Spontaneous
  Country: CA (occurrence: CA)
  Receive Date: 20190219
  Receipt Date: 20210909
  Transmission Date: 20211014
  Serious: Yes (Hospitalization, Other)
  Sender: FDA-Public Use
  Company Number: CA-009507513-1902CAN006256

PATIENT
  Age: 61 Year
  Sex: Female
  Weight: 84 kg

DRUGS (37)
  1. LEVAQUIN [Suspect]
     Active Substance: LEVOFLOXACIN
     Indication: ADVERSE EVENT
     Dosage: DOSE: 500 MILLIGRAM, FREQUENCY: 1 EVERY 1 DAYS; FORMULATION: NOT SPECIFIED
     Route: 048
  2. DEXAMETHASONE. [Concomitant]
     Active Substance: DEXAMETHASONE
     Dosage: FORMULATION: NOT SPECIFIED
  3. GABAPENTIN. [Concomitant]
     Active Substance: GABAPENTIN
     Indication: PRODUCT USED FOR UNKNOWN INDICATION
     Dosage: FREQUENCY: AS REQUIRED
     Route: 048
  4. EMEND [Suspect]
     Active Substance: APREPITANT
     Indication: SUPPORTIVE CARE
     Dosage: DOSE: 80.0 MILLIGRAM, FREQUENCY: 1 EVERY 1 DAY
     Route: 048
  5. EMEND [Suspect]
     Active Substance: APREPITANT
     Dosage: DOSE: 125.0 MILLIGRAM
     Route: 048
  6. EMEND [Suspect]
     Active Substance: APREPITANT
     Dosage: 125.0 MILLIGRAM, CYCLICAL
     Route: 048
  7. TAMIFLU [Suspect]
     Active Substance: OSELTAMIVIR PHOSPHATE
     Indication: ADVERSE EVENT
     Dosage: DOSE: 75.0 MILLIGRAM, FREQUENCY: 2 EVERY 1 DAY(S), FORMULATION: NOT SPECIFIED
     Route: 065
  8. PREDNISONE. [Suspect]
     Active Substance: PREDNISONE
     Indication: ADVERSE EVENT
     Dosage: DOSE:30 MILLIGRAM, FREQUENCY: 1 EVERY 1 DAY(S); FORMULATION: NOT SPECIFIED
     Route: 065
  9. CITALOPRAM [Concomitant]
     Active Substance: CITALOPRAM HYDROBROMIDE
     Indication: PRODUCT USED FOR UNKNOWN INDICATION
     Dosage: 20 MILLIGRAM, FREQUENCY: 1 EVERY 1 DAYS
     Route: 048
  10. HYDROMORPHONE [Concomitant]
     Active Substance: HYDROMORPHONE
     Indication: PRODUCT USED FOR UNKNOWN INDICATION
     Dosage: 2.0 MILLIGRAM, FREQUENCY: AS REQUIRED
     Route: 048
  11. PACLITAXEL. [Concomitant]
     Active Substance: PACLITAXEL
     Indication: BREAST CANCER
     Dosage: UNK
     Route: 065
  12. PACLITAXEL. [Concomitant]
     Active Substance: PACLITAXEL
     Dosage: UNK
     Route: 042
  13. PANTOPRAZOLE [Suspect]
     Active Substance: PANTOPRAZOLE
     Indication: PRODUCT USED FOR UNKNOWN INDICATION
     Dosage: DOSE: 40.0 MILLIGRAM, FREQUENCY: 1 EVERY 1 DAYS; FORMULATION: NOT SPECIFIED
     Route: 048
  14. PREDNISONE. [Suspect]
     Active Substance: PREDNISONE
     Indication: PRODUCT USED FOR UNKNOWN INDICATION
     Dosage: 40 MILLIGRAM, QD, FREQUENCY: 1 EVERY 1 DAYS(S); FORMULATION: NOT SPECIFIED
     Route: 065
  15. TRASTUZUMAB. [Suspect]
     Active Substance: TRASTUZUMAB
     Indication: BREAST CANCER
     Dosage: UNK
     Route: 065
  16. PARACETAMOL [Concomitant]
     Active Substance: ACETAMINOPHEN
     Indication: PRODUCT USED FOR UNKNOWN INDICATION
     Dosage: DOSE: 1300.0 MILLIGRAM, FREQUENCY: AS REQUIRED
     Route: 048
  17. PARACETAMOL [Concomitant]
     Active Substance: ACETAMINOPHEN
     Dosage: FORMULATION: NOT SPECIFIED
  18. HYDROMORPHONE [Concomitant]
     Active Substance: HYDROMORPHONE
     Dosage: 2.0 MILLIGRAM
     Route: 048
  19. NAPROXEN. [Concomitant]
     Active Substance: NAPROXEN
     Dosage: 220.0 MILLIGRAM
     Route: 048
  20. GABAPENTIN. [Concomitant]
     Active Substance: GABAPENTIN
     Dosage: UNK
     Route: 048
  21. VITAMIN D NOS [Concomitant]
     Active Substance: VITAMIN D NOS
     Dosage: 2000.0 INTERNATIONAL UNIT, 1 EVERY 1 DAYS
     Route: 048
  22. DOXORUBICIN HYDROCHLORIDE. [Suspect]
     Active Substance: DOXORUBICIN HYDROCHLORIDE
     Indication: BREAST CANCER
     Dosage: FREQUENCY:1 EVERY 14 DAYS/ 1 EVERY 2 WEEK
     Route: 042
  23. DOXORUBICIN HYDROCHLORIDE. [Suspect]
     Active Substance: DOXORUBICIN HYDROCHLORIDE
     Indication: PRODUCT USED FOR UNKNOWN INDICATION
     Dosage: CYCLICAL
     Route: 042
  24. METOCLOPRAMIDE. [Suspect]
     Active Substance: METOCLOPRAMIDE
     Indication: PRODUCT USED FOR UNKNOWN INDICATION
     Dosage: DOSE:10.0 MILLIGRAM, FREQUENCY: 1 EVERY 1 DAYS; FORMULATION: NOT SPECIFIED
     Route: 048
  25. ONDANSETRON [Suspect]
     Active Substance: ONDANSETRON
     Indication: SUPPORTIVE CARE
     Dosage: 8.0 MILLIGRAM; FORMULATION: NOT SPECIFIED
     Route: 048
  26. PEGFILGRASTIM [Suspect]
     Active Substance: PEGFILGRASTIM
     Indication: SUPPORTIVE CARE
     Dosage: 6.0 MILLIGRAM
     Route: 058
  27. DEXAMETHASONE. [Concomitant]
     Active Substance: DEXAMETHASONE
     Indication: SUPPORTIVE CARE
     Dosage: 20.0 MILLIGRAM, FREQUENCY: 1 EVERY 1 DAY
     Route: 048
  28. GABAPENTIN. [Concomitant]
     Active Substance: GABAPENTIN
     Dosage: FORMULATION: NOT SPECIFIED
  29. HYDROMORPHONE [Concomitant]
     Active Substance: HYDROMORPHONE
     Dosage: FORMULATION: NOT SPECIFIED
  30. PROCYTOX [Suspect]
     Active Substance: CYCLOPHOSPHAMIDE
     Dosage: DOSE: 1210.0 MILLIGRAM, FREQUENCY: 1 EVERY 14 DAY(S)/ 1 EVERY 2 WEEKS
     Route: 042
  31. NAPROXEN. [Concomitant]
     Active Substance: NAPROXEN
     Indication: PRODUCT USED FOR UNKNOWN INDICATION
     Dosage: 220.0 MILLIGRAM, FREQUENCY: AS REQUIRED
     Route: 048
  32. PACLITAXEL. [Concomitant]
     Active Substance: PACLITAXEL
     Dosage: FORMULATION: LIQUID INTRAVENOUS
     Route: 065
  33. EMEND [Suspect]
     Active Substance: APREPITANT
     Dosage: 800 MILLIGRAM, 1 EVERY 1 DAY
     Route: 048
  34. PROCYTOX [Suspect]
     Active Substance: CYCLOPHOSPHAMIDE
     Indication: BREAST CANCER
     Dosage: DOSE: 1210.0 MILLIGRAM, FREQUENCY: 1 EVERY 14 DAY(S)/ 1 EVERY 2 WEEKS
     Route: 042
  35. TAMIFLU [Suspect]
     Active Substance: OSELTAMIVIR PHOSPHATE
     Indication: PRODUCT USED FOR UNKNOWN INDICATION
  36. NAPROXEN. [Concomitant]
     Active Substance: NAPROXEN
     Dosage: FORMULATION: NOT SPECIFIED
  37. NAPROXEN. [Concomitant]
     Active Substance: NAPROXEN
     Dosage: 220.0 MILLIGRAM
     Route: 065

REACTIONS (8)
  - Gastrointestinal disorder [Unknown]
  - Dyspnoea [Unknown]
  - Respiratory syncytial virus infection [Unknown]
  - Atelectasis [Unknown]
  - Asthenia [Unknown]
  - Nausea [Unknown]
  - Respiratory failure [Unknown]
  - Decreased appetite [Unknown]
